FAERS Safety Report 6314026-4 (Version None)
Quarter: 2009Q3

REPORT INFORMATION
  Report Type: 
  Country: None (occurrence: None)
  Receive Date: 20090818
  Receipt Date: 20090807
  Transmission Date: 20100115
  Serious: Yes (Other)
  Sender: FDA-Public Use
  Company Number: GB-ELI_LILLY_AND_COMPANY-GB200908002049

PATIENT
  Sex: Female

DRUGS (2)
  1. FLUOXETINE [Suspect]
     Indication: PREMENSTRUAL SYNDROME
     Dosage: 20 MG, DAILY (1/D)
     Dates: start: 20090212
  2. ALCOHOL [Interacting]

REACTIONS (2)
  - ALCOHOL INTERACTION [None]
  - SOMNOLENCE [None]
